FAERS Safety Report 19190915 (Version 1)
Quarter: 2021Q2

REPORT INFORMATION
  Report Type: Spontaneous
  Country: US (occurrence: US)
  Receive Date: 20210428
  Receipt Date: 20210428
  Transmission Date: 20210717
  Serious: No
  Sender: FDA-Public Use
  Company Number: US-SA-2021SA138879

PATIENT
  Sex: Female

DRUGS (8)
  1. FLINTSTONES COMPLETE [Concomitant]
     Active Substance: VITAMINS
  2. ADVIL [Concomitant]
     Active Substance: IBUPROFEN
  3. CEREZYME [Suspect]
     Active Substance: IMIGLUCERASE
     Indication: GAUCHER^S DISEASE
     Dosage: 4800 IU, QOW
     Route: 042
     Dates: start: 20140918
  4. EPINEPHRINE [EPINEPHRINE HYDROCHLORIDE] [Concomitant]
  5. DIPHENHYDRAMINE. [Concomitant]
     Active Substance: DIPHENHYDRAMINE
  6. STERILE WATER [Concomitant]
     Active Substance: WATER
  7. LIDOCAINE. [Concomitant]
     Active Substance: LIDOCAINE
  8. NORMAL SALINE [Concomitant]
     Active Substance: SODIUM CHLORIDE

REACTIONS (2)
  - Depression [Unknown]
  - Weight decreased [Recovering/Resolving]
